FAERS Safety Report 23889482 (Version 2)
Quarter: 2024Q2

REPORT INFORMATION
  Report Type: Spontaneous
  Country: US (occurrence: US)
  Receive Date: 20240523
  Receipt Date: 20240528
  Transmission Date: 20240715
  Serious: Yes (Hospitalization, Other)
  Sender: FDA-Public Use
  Company Number: US-MLMSERVICE-20240513-PI058913-00132-1

PATIENT
  Age: 53 Year
  Sex: Female

DRUGS (5)
  1. EPINEPHRINE [Suspect]
     Active Substance: EPINEPHRINE
     Indication: Hypotension
     Dosage: DOBUTAMINE INFUSION WAS BRIDGED TO EPINEPHRINE
  2. EPINEPHRINE [Suspect]
     Active Substance: EPINEPHRINE
     Indication: Vascular resistance systemic decreased
  3. DOBUTAMINE [Concomitant]
     Active Substance: DOBUTAMINE HYDROCHLORIDE
     Dosage: WEAN (INFUSION)
  4. DOBUTAMINE [Concomitant]
     Active Substance: DOBUTAMINE HYDROCHLORIDE
     Dosage: DOBUTAMINE INFUSION WAS BRIDGED TO EPINEPHRINE
  5. DOBUTAMINE [Concomitant]
     Active Substance: DOBUTAMINE HYDROCHLORIDE
     Dosage: MODERATE DOSE (INFUSION)

REACTIONS (7)
  - Pulmonary arterial pressure increased [Unknown]
  - Vascular resistance pulmonary increased [Unknown]
  - Pulmonary valve incompetence [Unknown]
  - Cardiac output decreased [Recovering/Resolving]
  - Condition aggravated [Unknown]
  - Paradoxical drug reaction [Recovering/Resolving]
  - Cardiac index decreased [Recovering/Resolving]
